FAERS Safety Report 5942823-3 (Version None)
Quarter: 2008Q4

REPORT INFORMATION
  Report Type: 
  Country: None (occurrence: None)
  Receive Date: 20081103
  Receipt Date: 20081023
  Transmission Date: 20090506
  Serious: Yes (Hospitalization)
  Sender: FDA-Public Use
  Company Number: WAES 0805USA05040

PATIENT
  Age: 78 Year
  Sex: Male
  Weight: 97.977 kg

DRUGS (27)
  1. CAP VORINOSTAT UNK [Suspect]
     Indication: ACUTE MYELOID LEUKAEMIA
     Dosage: 400 MG, DAILY, PO
     Route: 048
     Dates: start: 20080331, end: 20080413
  2. CAP VORINOSTAT UNK [Suspect]
     Indication: ACUTE MYELOID LEUKAEMIA
     Dosage: 400 MG, DAILY, PO
     Route: 048
     Dates: start: 20080430, end: 20080513
  3. CAP VORINOSTAT UNK [Suspect]
     Indication: ACUTE MYELOID LEUKAEMIA
     Dosage: 400 MG, DAILY, PO
     Route: 048
     Dates: start: 20080528, end: 20080610
  4. CAP VORINOSTAT UNK [Suspect]
     Indication: ACUTE MYELOID LEUKAEMIA
     Dosage: 400 MG, DAILY, PO
     Route: 048
     Dates: start: 20080702, end: 20080715
  5. DECITABINE [Suspect]
     Indication: ACUTE MYELOID LEUKAEMIA
     Dosage: SEE IMAGE
     Route: 042
     Dates: start: 20080331, end: 20080404
  6. DECITABINE [Suspect]
     Indication: ACUTE MYELOID LEUKAEMIA
     Dosage: SEE IMAGE
     Route: 042
     Dates: start: 20080430, end: 20080504
  7. DECITABINE [Suspect]
     Indication: ACUTE MYELOID LEUKAEMIA
     Dosage: SEE IMAGE
     Route: 042
     Dates: start: 20080528, end: 20080601
  8. DECITABINE [Suspect]
     Indication: ACUTE MYELOID LEUKAEMIA
     Dosage: SEE IMAGE
     Route: 042
     Dates: start: 20080702, end: 20080703
  9. DECITABINE [Suspect]
     Indication: ACUTE MYELOID LEUKAEMIA
     Dosage: SEE IMAGE
     Route: 042
     Dates: start: 20080705, end: 20080707
  10. COLACE [Concomitant]
  11. COMPAZINE [Concomitant]
  12. FLOMAX [Concomitant]
  13. NORVASC [Concomitant]
  14. PROTONIX [Concomitant]
  15. ZOFRAN [Concomitant]
  16. THERAPY UNSPECIFIED [Concomitant]
  17. ACETAMINOPHEN [Concomitant]
  18. ACYCLOVIR [Concomitant]
  19. ALLOPURINOL [Concomitant]
  20. CHLORHEXIDINE GLUCONATE [Concomitant]
  21. DIGOXIN [Concomitant]
  22. DIPHENHYDRAMINE HYDROCHLORIDE [Concomitant]
  23. LISINOPRIL [Concomitant]
  24. METFORMIN HCL [Concomitant]
  25. MOXIFLOXACIN HYDROCHLORIDE [Concomitant]
  26. NYSTATIN [Concomitant]
  27. OXYCODONE HCL [Concomitant]

REACTIONS (20)
  - ASTHENIA [None]
  - ATRIAL FIBRILLATION [None]
  - CARDIAC FAILURE CONGESTIVE [None]
  - CELLULITIS [None]
  - ELECTROCARDIOGRAM ST-T SEGMENT ABNORMAL [None]
  - ENTEROCOCCAL INFECTION [None]
  - EPIDIDYMITIS [None]
  - FEBRILE NEUTROPENIA [None]
  - FURUNCLE [None]
  - HYPERBILIRUBINAEMIA [None]
  - HYPERGLYCAEMIA [None]
  - MASTOIDITIS [None]
  - MYOCARDIAL INFARCTION [None]
  - MYOCARDIAL ISCHAEMIA [None]
  - NAUSEA [None]
  - RASH PUSTULAR [None]
  - STAPHYLOCOCCAL SKIN INFECTION [None]
  - TENDERNESS [None]
  - VOMITING [None]
  - WHITE BLOOD CELL COUNT DECREASED [None]
